FAERS Safety Report 14225117 (Version 1)
Quarter: 2017Q4

REPORT INFORMATION
  Report Type: Spontaneous
  Country: US (occurrence: US)
  Receive Date: 20171127
  Receipt Date: 20171127
  Transmission Date: 20180321
  Serious: No
  Sender: FDA-Public Use
  Company Number: US-AUROBINDO-AUR-APU-2015-02202

PATIENT
  Sex: Female
  Weight: 55.7 kg

DRUGS (5)
  1. CLOPIDOGREL [Concomitant]
     Active Substance: CLOPIDOGREL BISULFATE
     Indication: ANTICOAGULANT THERAPY
     Dosage: 1 DF, DAILY
     Route: 065
  2. LOSARTAN POTASSIUM TABLETS USP 50MG [Suspect]
     Active Substance: LOSARTAN POTASSIUM
     Indication: HYPERTENSION
     Dosage: 1 DF, ONCE A DAY
     Route: 065
  3. TRIAMTERENE. [Concomitant]
     Active Substance: TRIAMTERENE
     Indication: JOINT SWELLING
     Dosage: 1/2 TABLET
     Route: 065
  4. LOSARTAN POTASSIUM TABLETS USP 50MG [Suspect]
     Active Substance: LOSARTAN POTASSIUM
     Dosage: 1 DF, TWO TIMES A DAY
     Route: 065
  5. METOPROLOL. [Concomitant]
     Active Substance: METOPROLOL
     Indication: HYPERTENSION
     Dosage: 1 AND 1/2 TABLET, TWO TIMES A DAY
     Route: 065

REACTIONS (4)
  - Dizziness [Not Recovered/Not Resolved]
  - Rhinitis [Not Recovered/Not Resolved]
  - Pharyngitis [Not Recovered/Not Resolved]
  - Nasal congestion [Not Recovered/Not Resolved]
